FAERS Safety Report 5160823-0 (Version None)
Quarter: 2006Q4

REPORT INFORMATION
  Report Type: 
  Country: None (occurrence: None)
  Receive Date: 20061121
  Receipt Date: 20061110
  Transmission Date: 20070319
  Serious: Yes (Death)
  Sender: FDA-Public Use
  Company Number: 2006JP004651

PATIENT
  Age: 85 Year
  Sex: Female

DRUGS (2)
  1. PROGRAF [Suspect]
     Indication: RHEUMATOID ARTHRITIS
     Dosage: 1 MG, ORAL
     Route: 048
     Dates: start: 20060401, end: 20061109
  2. PREDONINE (PREDNISOLONE SODIUM SUCCINATE) PER ORAL NOS [Concomitant]

REACTIONS (1)
  - INTERSTITIAL LUNG DISEASE [None]
